FAERS Safety Report 12972895 (Version 4)
Quarter: 2017Q1

REPORT INFORMATION
  Report Type: Spontaneous
  Country: US (occurrence: US)
  Receive Date: 20161124
  Receipt Date: 20170301
  Transmission Date: 20170428
  Serious: No
  Sender: FDA-Public Use
  Company Number: US-PFIZER INC-2016547233

PATIENT
  Age: 4 Year
  Sex: Male
  Weight: 26 kg

DRUGS (7)
  1. GENOTROPIN [Suspect]
     Active Substance: SOMATROPIN
     Indication: HYPOPITUITARISM
     Dosage: UNK
  2. CORTISOL [Concomitant]
     Active Substance: HYDROCORTISONE
  3. GENOTROPIN [Suspect]
     Active Substance: SOMATROPIN
     Indication: PHACES SYNDROME
     Dosage: 0.8 MG, 1X/DAY AT NIGHT BEFORE BED
     Route: 058
  4. LEVOTHYROXINE. [Concomitant]
     Active Substance: LEVOTHYROXINE
     Indication: HORMONE REPLACEMENT THERAPY
     Dosage: 50 UG, 1X/DAY
  5. GENOTROPIN [Suspect]
     Active Substance: SOMATROPIN
     Indication: CONGENITAL HYPOTHYROIDISM
     Dosage: UNK
  6. HYDROCORT /00028602/ [Concomitant]
     Indication: HORMONE REPLACEMENT THERAPY
     Dosage: MG
  7. GENOTROPIN [Suspect]
     Active Substance: SOMATROPIN
     Indication: HYPOGLYCAEMIA
     Dosage: UNK
     Route: 058

REACTIONS (3)
  - Lethargy [Unknown]
  - Intentional product misuse [Unknown]
  - Drug dose omission [Unknown]
